FAERS Safety Report 7846461-7 (Version None)
Quarter: 2011Q4

REPORT INFORMATION
  Report Type: 
  Country: None (occurrence: None)
  Receive Date: 20111025
  Receipt Date: 20111025
  Transmission Date: 20120403
  Serious: Yes (Other)
  Sender: FDA-Public Use
  Company Number: None

PATIENT
  Age: 45 Year
  Sex: Male
  Weight: 22.679 kg

DRUGS (3)
  1. BUDESONIDE [Suspect]
     Indication: MULTIPLE ALLERGIES
     Dosage: 1 VIAL INHALED VIA NEBULIZER
     Route: 065
     Dates: start: 20110821, end: 20111024
  2. BUDESONIDE [Suspect]
     Indication: RESPIRATORY DISORDER
     Dosage: 1 VIAL INHALED VIA NEBULIZER
     Route: 065
     Dates: start: 20110821, end: 20111024
  3. BUDESONIDE [Suspect]
     Indication: ASTHMA
     Dosage: 1 VIAL INHALED VIA NEBULIZER
     Route: 065
     Dates: start: 20110821, end: 20111024

REACTIONS (3)
  - ABNORMAL BEHAVIOUR [None]
  - PRODUCT SUBSTITUTION ISSUE [None]
  - AGGRESSION [None]
